FAERS Safety Report 8327749-2 (Version None)
Quarter: 2012Q2

REPORT INFORMATION
  Report Type: 
  Country: None (occurrence: None)
  Receive Date: 20120502
  Receipt Date: 20120425
  Transmission Date: 20120825
  Serious: No
  Sender: FDA-Public Use
  Company Number: US-PFIZER INC-2012106381

PATIENT
  Sex: Female
  Weight: 82.086 kg

DRUGS (6)
  1. GABAPENTIN [Suspect]
     Indication: GAIT DISTURBANCE
     Dosage: 100 MG, 3X/DAY
     Route: 048
     Dates: start: 20120201, end: 20120201
  2. NORCO [Concomitant]
     Dosage: UNK
  3. TEMAZEPAM [Concomitant]
     Dosage: UNK
  4. GABAPENTIN [Suspect]
     Indication: PAIN IN EXTREMITY
  5. GABAPENTIN [Suspect]
     Indication: PAIN
  6. PREDNISONE [Concomitant]
     Dosage: UNK

REACTIONS (1)
  - DRUG INEFFECTIVE [None]
